FAERS Safety Report 14279658 (Version 4)
Quarter: 2018Q1

REPORT INFORMATION
  Report Type: Spontaneous
  Country: US (occurrence: JP)
  Receive Date: 20171212
  Receipt Date: 20180125
  Transmission Date: 20180508
  Serious: Yes (Death, Hospitalization, Other)
  Sender: FDA-Public Use
  Company Number: US-SUNOVION-2017SUN005255

PATIENT
  Age: 97 Year
  Sex: Male
  Weight: 45 kg

DRUGS (10)
  1. THEOPHYLLINE [Concomitant]
     Active Substance: THEOPHYLLINE ANHYDROUS
     Dosage: UNK
     Dates: start: 20150402, end: 20171130
  2. GLYCOPYRROLATE. [Suspect]
     Active Substance: GLYCOPYRROLATE
     Indication: CHRONIC OBSTRUCTIVE PULMONARY DISEASE
     Dosage: 1 DF, QD
     Route: 055
     Dates: start: 20171003, end: 20171116
  3. REBAMIPIDE [Concomitant]
     Active Substance: REBAMIPIDE
     Dosage: UNK
     Dates: start: 20150402, end: 20171130
  4. AMOBAN [Concomitant]
     Active Substance: ZOPICLONE
     Dosage: UNK
     Dates: start: 20150402, end: 20171130
  5. PLAVIX [Concomitant]
     Active Substance: CLOPIDOGREL BISULFATE
     Dosage: UNK
     Dates: start: 20100302, end: 20171130
  6. LANSOPRAZOLE. [Concomitant]
     Active Substance: LANSOPRAZOLE
     Dosage: UNK
     Dates: start: 20150402, end: 20171130
  7. MICARDIS [Concomitant]
     Active Substance: TELMISARTAN
     Dosage: UNK
     Dates: start: 20100302, end: 20171116
  8. MAGNESIUM [Concomitant]
     Active Substance: MAGNESIUM
     Dosage: UNK
     Dates: start: 20160421, end: 20171130
  9. COMELIAN [Concomitant]
     Active Substance: DILAZEP
     Dosage: UNK
     Dates: start: 20100302, end: 20171130
  10. ALOSENN [Concomitant]
     Active Substance: SENNA LEAF
     Dosage: UNK
     Dates: start: 20121207, end: 20171130

REACTIONS (9)
  - Dysphagia [Unknown]
  - Pyrexia [Unknown]
  - Loss of consciousness [Recovered/Resolved]
  - Tumour marker increased [Unknown]
  - Bradycardia [Not Recovered/Not Resolved]
  - Asthenia [Unknown]
  - Hepatic function abnormal [Unknown]
  - Hepatic neoplasm [Fatal]
  - Blood pressure decreased [Recovered/Resolved]

NARRATIVE: CASE EVENT DATE: 20171116
